FAERS Safety Report 7028110-3 (Version None)
Quarter: 2010Q3

REPORT INFORMATION
  Report Type: 
  Country: None (occurrence: None)
  Receive Date: 20100930
  Receipt Date: 20100914
  Transmission Date: 20110219
  Serious: No
  Sender: FDA-Public Use
  Company Number: ACO_01268_2010

PATIENT
  Sex: Male
  Weight: 73.9363 kg

DRUGS (20)
  1. AMPYRA [Suspect]
     Indication: MULTIPLE SCLEROSIS
     Dosage: 10 MG BID ORAL
     Route: 048
     Dates: start: 20100601
  2. AMPYRA [Suspect]
     Indication: PERONEAL NERVE PALSY
     Dosage: 10 MG BID ORAL
     Route: 048
     Dates: start: 20100601
  3. REBIF [Concomitant]
  4. PRAVASTATIN [Concomitant]
  5. TIMOLOL MALEATE [Concomitant]
  6. GEMFIBROZIL [Concomitant]
  7. METFORMIN HCL [Concomitant]
  8. COMBIVENT [Concomitant]
  9. RANITIDINE [Concomitant]
  10. DIAZEPAM [Concomitant]
  11. DICLOFENAC SODIUM [Concomitant]
  12. GABAPENTIN [Concomitant]
  13. BUDEPRION [Concomitant]
  14. FEXOFENADINE HCL [Concomitant]
  15. ASPIRIN [Concomitant]
  16. NASONEX [Concomitant]
  17. TRAVATAN [Concomitant]
  18. FLUCINONIDE [Concomitant]
  19. CLOTRIMAZOLE [Concomitant]
  20. CHLORHEXIDINE GLUCONATE [Concomitant]

REACTIONS (9)
  - CONDITION AGGRAVATED [None]
  - DRUG DOSE OMISSION [None]
  - DRUG EFFECT DECREASED [None]
  - HEADACHE [None]
  - INSOMNIA [None]
  - MUSCLE ATROPHY [None]
  - MUSCULAR WEAKNESS [None]
  - STRESS [None]
  - THERAPEUTIC RESPONSE UNEXPECTED [None]
